FAERS Safety Report 5374405-9 (Version None)
Quarter: 2007Q2

REPORT INFORMATION
  Report Type: 
  Country: None (occurrence: None)
  Receive Date: 20070629
  Receipt Date: 20060616
  Transmission Date: 20071010
  Serious: No
  Sender: FDA-Public Use
  Company Number: US-BRISTOL-MYERS SQUIBB COMPANY-13415146

PATIENT
  Sex: Male

DRUGS (1)
  1. REYATAZ [Suspect]
     Dates: start: 20060601

REACTIONS (1)
  - JAUNDICE [None]
